FAERS Safety Report 21920999 (Version 1)
Quarter: 2023Q1

REPORT INFORMATION
  Report Type: Spontaneous
  Country: IT (occurrence: IT)
  Receive Date: 20230127
  Receipt Date: 20230127
  Transmission Date: 20230417
  Serious: Yes (Other)
  Sender: FDA-Public Use
  Company Number: None

PATIENT
  Age: 53 Year
  Sex: Female

DRUGS (4)
  1. NORVASC [Suspect]
     Active Substance: AMLODIPINE BESYLATE
     Indication: Hypertensive heart disease
     Dosage: QD(14 TABLETS,1 TABLET PER DAY)
     Route: 048
     Dates: start: 20190109
  2. METFORMIN HYDROCHLORIDE [Suspect]
     Active Substance: METFORMIN HYDROCHLORIDE
     Indication: Type 2 diabetes mellitus
     Dosage: QD (60 TABLET, 1 TABLET/ DAY)
     Route: 048
     Dates: start: 20190109, end: 20190306
  3. ATORVASTATIN [Concomitant]
     Active Substance: ATORVASTATIN
     Indication: Dyslipidaemia
     Dosage: QD (30 TABLET, 1 TABLET/ DAY)
     Route: 048
     Dates: start: 20190109
  4. BISOPROLOL FUMARATE [Concomitant]
     Active Substance: BISOPROLOL FUMARATE
     Indication: Hypertensive heart disease
     Dosage: QD (28 TABLET, 1 TABLET/ DAY)
     Route: 048
     Dates: start: 20190109

REACTIONS (3)
  - Hyperglycaemic crisis [Recovered/Resolved]
  - Hypoglycaemia [Recovered/Resolved]
  - Diarrhoea [Recovered/Resolved]

NARRATIVE: CASE EVENT DATE: 20190109
